FAERS Safety Report 9802875 (Version 1)
Quarter: 2014Q1

REPORT INFORMATION
  Report Type: Spontaneous
  Country: GB (occurrence: None)
  Receive Date: 20140102
  Receipt Date: 20140102
  Transmission Date: 20141002
  Serious: Yes (Other)
  Sender: FDA-Public Use
  Company Number: AUR-APL-2013-10704

PATIENT
  Age: 47 Year
  Sex: Female

DRUGS (13)
  1. GABAPENTIN (GABAPENTIN) [Suspect]
     Indication: NEURALGIA
     Dosage: 700MG (700MG, 1 IN 1D) ORAL
     Route: 048
  2. BECLOMETASONE (BECLOMETASONE) [Concomitant]
  3. BUSCOPAN (HYOSCINE BUTYLBROMIDE) [Concomitant]
  4. CITALOPRAM (CITALOPRAM) [Concomitant]
  5. EVOREL (ESTRADIOL) [Concomitant]
  6. FENTANYL (FENTANYL) [Concomitant]
  7. FLUOXETINE HYDROCHLORIDE (FLUOXETINE HYDROCHLORIDE) [Concomitant]
  8. IBUPROFEN (IBUPROFEN) [Concomitant]
  9. LANSOPRAZOLE (LANSOPRAZOLE) [Concomitant]
  10. LOPERAMIDE (LOPERAMIDE) [Concomitant]
  11. ORAMORPH (MORPHINE SULFATE PENTAHYDRATE) [Concomitant]
  12. PARACETAMOL (PARACETAMOL) [Concomitant]
  13. SALBUTAMOL (SALBUTAMOL) [Concomitant]

REACTIONS (1)
  - Teeth brittle [None]
